FAERS Safety Report 9917757 (Version 3)
Quarter: 2014Q2

REPORT INFORMATION
  Report Type: Spontaneous
  Country: US (occurrence: US)
  Receive Date: 20140221
  Receipt Date: 20140404
  Transmission Date: 20141212
  Serious: Yes (Other)
  Sender: FDA-Public Use
  Company Number: US-LUNDBECK-DKLU1097513

PATIENT
  Age: 14 Year
  Sex: Female
  Weight: 28 kg

DRUGS (13)
  1. SABRIL     (TABLET) [Suspect]
     Indication: EPILEPSY
     Route: 048
     Dates: start: 20130829
  2. SABRIL     (TABLET) [Suspect]
     Route: 048
  3. SABRIL     (TABLET) [Suspect]
  4. TOPAMAX [Suspect]
     Indication: PRODUCT USED FOR UNKNOWN INDICATION
     Dates: end: 20140224
  5. DEPAKOTE SPRINKLES [Concomitant]
     Indication: PRODUCT USED FOR UNKNOWN INDICATION
  6. JOLESSA [Concomitant]
     Indication: PRODUCT USED FOR UNKNOWN INDICATION
  7. KEPPRA [Concomitant]
     Indication: PRODUCT USED FOR UNKNOWN INDICATION
  8. KLONOPIN [Concomitant]
     Indication: PRODUCT USED FOR UNKNOWN INDICATION
  9. KLONOPIN [Concomitant]
  10. KLONOPIN [Concomitant]
  11. CARNITINE [Concomitant]
     Indication: PRODUCT USED FOR UNKNOWN INDICATION
  12. LEVOTHYROXINE [Concomitant]
     Indication: PRODUCT USED FOR UNKNOWN INDICATION
  13. MIRALAX [Concomitant]
     Indication: PRODUCT USED FOR UNKNOWN INDICATION

REACTIONS (4)
  - Failure to thrive [Unknown]
  - Hypotension [Recovered/Resolved]
  - Convulsion [Recovered/Resolved]
  - Decreased appetite [Unknown]
